FAERS Safety Report 11400537 (Version 1)
Quarter: 2015Q3

REPORT INFORMATION
  Report Type: Spontaneous
  Country: US (occurrence: None)
  Receive Date: 20150819
  Receipt Date: 20150819
  Transmission Date: 20151125
  Serious: Yes (Death, Life-Threatening, Hospitalization)
  Sender: FDA-Public Use
  Company Number: CA15-0236

PATIENT
  Age: 59 Year
  Sex: Male
  Weight: 122.9 kg

DRUGS (2)
  1. ENOXAPARIN SODIUM. [Suspect]
     Active Substance: ENOXAPARIN SODIUM
     Indication: PULMONARY EMBOLISM
     Dosage: 125 MG/ML
     Dates: start: 20150717, end: 20150722
  2. DILAUDID [Concomitant]
     Active Substance: HYDROMORPHONE HYDROCHLORIDE

REACTIONS (10)
  - Pain in extremity [None]
  - Haematoma [None]
  - Cerebral haemorrhage [None]
  - Renal failure [None]
  - Abasia [None]
  - Pain [None]
  - Compartment syndrome [None]
  - Cerebral artery embolism [None]
  - Deep vein thrombosis [None]
  - Petechiae [None]

NARRATIVE: CASE EVENT DATE: 20150722
